FAERS Safety Report 18729373 (Version 4)
Quarter: 2021Q1

REPORT INFORMATION
  Report Type: Report from Study
  Country: CA (occurrence: CA)
  Receive Date: 20210112
  Receipt Date: 20210317
  Transmission Date: 20210419
  Serious: Yes (Hospitalization, Other)
  Sender: FDA-Public Use
  Company Number: CA-GLAXOSMITHKLINE-CA2021AMR001955

PATIENT
  Sex: Female

DRUGS (2)
  1. MEPOLIZUMAB [Suspect]
     Active Substance: MEPOLIZUMAB
     Dosage: 100 MG, Z MONTHLY(EVERY 4 WEEKS)
     Route: 058
  2. MEPOLIZUMAB [Suspect]
     Active Substance: MEPOLIZUMAB
     Indication: ASTHMA
     Dosage: 100 MG, Z (MONTHLY)
     Route: 042
     Dates: start: 20190813

REACTIONS (8)
  - Abdominal distension [Unknown]
  - Pain [Unknown]
  - Rheumatoid arthritis [Unknown]
  - Constipation [Unknown]
  - Abdominal pain upper [Unknown]
  - Gastritis [Unknown]
  - Arthritis [Unknown]
  - Arthralgia [Not Recovered/Not Resolved]
